FAERS Safety Report 20496894 (Version 1)
Quarter: 2022Q1

REPORT INFORMATION
  Report Type: Spontaneous
  Country: CA (occurrence: CA)
  Receive Date: 20220221
  Receipt Date: 20220221
  Transmission Date: 20220424
  Serious: Yes (Hospitalization, Other)
  Sender: FDA-Public Use
  Company Number: CA-TAKEDA-2022TUS009734

PATIENT
  Age: 80 Year
  Sex: Male
  Weight: 86 kg

DRUGS (1)
  1. GAMMAGARD LIQUID [Suspect]
     Active Substance: HUMAN IMMUNOGLOBULIN G
     Indication: Primary immunodeficiency syndrome
     Route: 042

REACTIONS (7)
  - Pneumonia [Unknown]
  - Condition aggravated [Unknown]
  - Dyspnoea [Recovered/Resolved]
  - Chills [Recovering/Resolving]
  - Chest discomfort [Recovering/Resolving]
  - Tachycardia [Unknown]
  - Incorrect dose administered [Unknown]

NARRATIVE: CASE EVENT DATE: 20220208
